FAERS Safety Report 6918162-0 (Version None)
Quarter: 2010Q3

REPORT INFORMATION
  Report Type: 
  Country: None (occurrence: None)
  Receive Date: 20100806
  Receipt Date: 20100720
  Transmission Date: 20110219
  Serious: Yes (Hospitalization, Other)
  Sender: FDA-Public Use
  Company Number: 2010P1000166

PATIENT
  Sex: Male
  Weight: 101.1521 kg

DRUGS (9)
  1. CARBAMAZEPINE [Suspect]
     Indication: EPILEPSY
     Dosage: 600 MG; BID; PO, 300 MG; QD; PO
     Route: 048
     Dates: start: 20100401, end: 20100701
  2. CARBAMAZEPINE [Suspect]
     Indication: EPILEPSY
     Dosage: 600 MG; BID; PO, 300 MG; QD; PO
     Route: 048
     Dates: start: 20100701, end: 20100701
  3. LIPOFEN (FENOFIBRATE) [Concomitant]
  4. SIMVASTATIN [Concomitant]
  5. ARTHROTEC (DICLOFENAC AND MISOPROSTOL) [Concomitant]
  6. AMLODIPINE BESYLATE [Concomitant]
  7. HYDROCHLOROTHIAZIDE [Concomitant]
  8. LISINOPRIL [Concomitant]
  9. LEVETIRACETAM [Concomitant]

REACTIONS (9)
  - ANTICONVULSANT DRUG LEVEL BELOW THERAPEUTIC [None]
  - ANXIETY [None]
  - AURA [None]
  - FATIGUE [None]
  - GRAND MAL CONVULSION [None]
  - IMPAIRED DRIVING ABILITY [None]
  - PRODUCT SUBSTITUTION ISSUE [None]
  - SOMNOLENCE [None]
  - SPEECH DISORDER [None]
